FAERS Safety Report 8765360 (Version 1)
Quarter: 2012Q4

REPORT INFORMATION
  Report Type: 
  Country: US (occurrence: US)
  Receive Date: 20120830
  Receipt Date: 20120830
  Transmission Date: 20130627
  Serious: Yes (Hospitalization)
  Sender: FDA-Public Use
  Company Number: US-ELI_LILLY_AND_COMPANY-US200910007913

PATIENT
  Sex: Male

DRUGS (12)
  1. KLONOPIN [Concomitant]
     Dosage: 1 DF, unknown
  2. TOPAMAX [Concomitant]
     Dosage: 1 DF, unknown
  3. WELLBUTRIN [Concomitant]
     Dosage: 150 mg, bid
  4. ASPIRIN [Concomitant]
     Dosage: 1 DF, unknown
  5. ZYPREXA [Suspect]
     Indication: BIPOLAR DISORDER
     Dosage: 1 D/F, UNK
     Route: 048
     Dates: start: 19970627, end: 20050328
  6. ZYPREXA [Suspect]
     Dosage: 20 mg, qd
     Route: 048
  7. ZYPREXA [Suspect]
     Dosage: 30 mg, qd
     Route: 048
  8. ZYPREXA [Suspect]
     Dosage: 10 mg, qd
     Route: 048
  9. ZYPREXA [Suspect]
     Dosage: 5 mg, qd
     Route: 048
  10. ZYPREXA [Suspect]
     Dosage: 25 mg, qd
     Route: 048
  11. LITHOBID [Concomitant]
     Indication: BIPOLAR DISORDER
     Dosage: 600 mg, bid
  12. LITHOBID [Concomitant]
     Dosage: 1 DF, unknown

REACTIONS (14)
  - Perineal abscess [Recovering/Resolving]
  - Cellulitis [Recovering/Resolving]
  - Wound complication [Unknown]
  - Peripheral vascular disorder [Unknown]
  - Venous insufficiency [Unknown]
  - Erectile dysfunction [Unknown]
  - Onychomycosis [Unknown]
  - Ingrowing nail [Unknown]
  - Diabetes mellitus inadequate control [Unknown]
  - Diabetes mellitus [Unknown]
  - Dyslipidaemia [Unknown]
  - Weight increased [Unknown]
  - Hypertension [Unknown]
  - Prescribed overdose [Unknown]
